FAERS Safety Report 9173873 (Version 1)
Quarter: 2013Q1

REPORT INFORMATION
  Report Type: Spontaneous
  Country: US (occurrence: US)
  Receive Date: 20130320
  Receipt Date: 20130320
  Transmission Date: 20140127
  Serious: No
  Sender: FDA-Public Use
  Company Number: US-BAYER-2013-034405

PATIENT
  Age: 56 Year
  Sex: Female
  Weight: 72.56 kg

DRUGS (18)
  1. BETASERON [Suspect]
     Dosage: 0.25 MG, QOD
     Route: 058
  2. FLEXERIL [Concomitant]
     Dosage: 10 MG, UNK
  3. ARIXTRA [Concomitant]
     Dosage: 2.5/0.5
  4. PROTONIX [Concomitant]
     Dosage: 40 MG, UNK
  5. PLAQUENIL [Concomitant]
     Dosage: 200 MG, UNK
  6. METHOTREXATE [Concomitant]
     Dosage: 2.5 MG, UNK
  7. LIPITOR [Concomitant]
     Dosage: 20 MG, UNK
  8. NEURONTIN [Concomitant]
     Dosage: 300 MG, UNK
  9. SYNTHROID [Concomitant]
     Dosage: 125 ?G, UNK
  10. LOTREL [Concomitant]
     Dosage: 10-20 MG
  11. LORAZEPAM [Concomitant]
     Dosage: 1 MG, UNK
  12. FOLIC ACID [Concomitant]
     Dosage: 1 MG, UNK
  13. BACLOFEN [Concomitant]
     Dosage: 20 MG, UNK
  14. KLOR-CON [Concomitant]
     Dosage: 8 DF,8MEQ
  15. HALOPERIDOL [Concomitant]
     Dosage: 2 MG, UNK
  16. VITAMIN D [Concomitant]
     Dosage: 1000 U, UNK
  17. PROVIGIL [Concomitant]
     Dosage: 200 MG, UNK
  18. ASPIRIN [Concomitant]
     Dosage: 81 MG, UNK

REACTIONS (4)
  - Vision blurred [Unknown]
  - Hypoaesthesia [Unknown]
  - Paraesthesia [Unknown]
  - Dyskinesia [Unknown]
